FAERS Safety Report 7333240 (Version 23)
Quarter: 2014Q4

REPORT INFORMATION
  Report Type: Report from Study
  Country: CA (occurrence: CA)
  Receive Date: 20100326
  Receipt Date: 20141120
  Transmission Date: 20150529
  Serious: Yes (Other)
  Sender: FDA-Public Use
  Company Number: PHHY2010CA16427

PATIENT
  Age: 58 Year
  Sex: Male

DRUGS (7)
  1. SANDOSTATIN LAR DEPOT [Suspect]
     Active Substance: OCTREOTIDE ACETATE
     Dosage: 40 MG, QMO
     Route: 030
  2. SANDOSTATIN LAR DEPOT [Suspect]
     Active Substance: OCTREOTIDE ACETATE
     Dosage: 20 MG, QMO
     Route: 030
  3. NOVORAPID [Concomitant]
     Active Substance: INSULIN ASPART
     Indication: PRODUCT USED FOR UNKNOWN INDICATION
     Dosage: UNK UKN, UNK
     Route: 065
  4. SANDOSTATIN LAR DEPOT [Suspect]
     Active Substance: OCTREOTIDE ACETATE
     Indication: ACRAL OVERGROWTH
     Dosage: 20 MG, QMO
     Route: 030
     Dates: start: 20100217, end: 20100317
  5. SANDOSTATIN LAR DEPOT [Suspect]
     Active Substance: OCTREOTIDE ACETATE
     Dosage: 10 MG, UNK
     Route: 030
  6. SANDOSTATIN LAR DEPOT [Suspect]
     Active Substance: OCTREOTIDE ACETATE
     Dosage: 30 MG, QMO
     Route: 030
  7. SANDOSTATIN LAR DEPOT [Suspect]
     Active Substance: OCTREOTIDE ACETATE
     Dosage: 30 MG, QMO
     Route: 030

REACTIONS (28)
  - Oedema peripheral [Unknown]
  - Injection site haemorrhage [Unknown]
  - Heart rate decreased [Unknown]
  - Weight increased [Unknown]
  - Amnesia [Unknown]
  - Erythema [Unknown]
  - Arthralgia [Unknown]
  - Somnolence [Unknown]
  - Diarrhoea [Not Recovered/Not Resolved]
  - Abdominal distension [Not Recovered/Not Resolved]
  - Blood glucose decreased [Unknown]
  - Blood glucose fluctuation [Unknown]
  - Asthenia [Unknown]
  - Hypersomnia [Not Recovered/Not Resolved]
  - Blood growth hormone increased [Unknown]
  - Limb injury [Unknown]
  - Alopecia [Unknown]
  - Injection site pain [Unknown]
  - Gastrointestinal pain [Unknown]
  - Flatulence [Not Recovered/Not Resolved]
  - Loss of consciousness [Unknown]
  - Hyperhidrosis [Unknown]
  - Decreased appetite [Unknown]
  - Pruritus [Unknown]
  - Faeces discoloured [Unknown]
  - Blood pressure increased [Unknown]
  - Blood cortisol decreased [Unknown]
  - Fatigue [Unknown]

NARRATIVE: CASE EVENT DATE: 2014
